FAERS Safety Report 6207180-6 (Version None)
Quarter: 2009Q2

REPORT INFORMATION
  Report Type: 
  Country: None (occurrence: None)
  Receive Date: 20090528
  Receipt Date: 20090518
  Transmission Date: 20091009
  Serious: Yes (Hospitalization)
  Sender: FDA-Public Use
  Company Number: FR-BAXTER-2009BH008921

PATIENT
  Age: 40 Year
  Sex: Female

DRUGS (9)
  1. ENDOXAN BAXTER [Suspect]
     Indication: LUPUS NEPHRITIS
     Route: 042
     Dates: start: 20081222, end: 20090223
  2. CORTANCYL [Concomitant]
     Indication: SYSTEMIC LUPUS ERYTHEMATOSUS
     Route: 048
     Dates: start: 19950801
  3. LASIX [Concomitant]
     Indication: SYSTEMIC LUPUS ERYTHEMATOSUS
     Route: 048
     Dates: start: 20081101
  4. APROVEL [Concomitant]
     Indication: SYSTEMIC LUPUS ERYTHEMATOSUS
     Route: 048
  5. TAHOR [Concomitant]
     Indication: DRUG USE FOR UNKNOWN INDICATION
     Route: 048
  6. OROCAL D(3) [Concomitant]
     Indication: DRUG USE FOR UNKNOWN INDICATION
     Route: 048
  7. OMEPRAZOLE [Concomitant]
     Indication: DRUG USE FOR UNKNOWN INDICATION
     Route: 048
  8. IMOVANE [Concomitant]
     Indication: INSOMNIA
     Route: 048
  9. DIFFU K [Concomitant]
     Indication: DRUG USE FOR UNKNOWN INDICATION
     Route: 048

REACTIONS (4)
  - CEREBRAL ARTERITIS [None]
  - CEREBRAL HAEMORRHAGE [None]
  - EPILEPSY [None]
  - HEADACHE [None]
